FAERS Safety Report 7462851-9 (Version None)
Quarter: 2011Q2

REPORT INFORMATION
  Report Type: 
  Country: None (occurrence: None)
  Receive Date: 20110506
  Receipt Date: 20110113
  Transmission Date: 20111010
  Serious: Yes (Other)
  Sender: FDA-Public Use
  Company Number: US-BAYER-201039181NA

PATIENT
  Age: 17 Year
  Sex: Female
  Weight: 73 kg

DRUGS (1)
  1. YASMIN [Suspect]
     Indication: PRODUCT USED FOR UNKNOWN INDICATION
     Dosage: UNK UNK, QD
     Dates: start: 20030101, end: 20040101

REACTIONS (12)
  - CHOLECYSTECTOMY [None]
  - CHOLECYSTITIS CHRONIC [None]
  - ABDOMINAL DISTENSION [None]
  - ANXIETY [None]
  - VOMITING [None]
  - FLATULENCE [None]
  - CONSTIPATION [None]
  - ABDOMINAL PAIN [None]
  - DIARRHOEA [None]
  - NAUSEA [None]
  - DYSPEPSIA [None]
  - DEPRESSION [None]
